FAERS Safety Report 20031489 (Version 1)
Quarter: 2021Q4

REPORT INFORMATION
  Report Type: Spontaneous
  Country: US (occurrence: US)
  Receive Date: 20211103
  Receipt Date: 20211103
  Transmission Date: 20220304
  Serious: Yes (Hospitalization)
  Sender: FDA-Public Use
  Company Number: US-MYLANLABS-2021M1080634

PATIENT
  Sex: Male

DRUGS (2)
  1. METHOTREXATE [Suspect]
     Active Substance: METHOTREXATE
     Indication: Product used for unknown indication
     Dosage: THE MAN WAS SCHEDULED TO RECEIVE FOUR METHOTREXATE???.
     Route: 065
  2. FOLIC ACID [Concomitant]
     Active Substance: FOLIC ACID
     Indication: Product used for unknown indication
     Dosage: THE MAN WAS SCHEDULED TO RECEIVE FOLIC ACID TABLETS FOR SIX??
     Route: 065

REACTIONS (2)
  - Product administration error [Unknown]
  - Thrombocytopenia [Unknown]
